FAERS Safety Report 12681962 (Version 3)
Quarter: 2016Q3

REPORT INFORMATION
  Report Type: Spontaneous
  Country: US (occurrence: US)
  Receive Date: 20160824
  Receipt Date: 20160902
  Transmission Date: 20161109
  Serious: Yes (Life-Threatening, Hospitalization, Other)
  Sender: FDA-Public Use
  Company Number: US-SA-2016SA155267

PATIENT
  Age: 63 Year
  Sex: Male

DRUGS (10)
  1. 5-FU [Concomitant]
     Active Substance: FLUOROURACIL
     Indication: COLORECTAL CANCER STAGE III
     Route: 065
  2. LEUCOVORIN. [Concomitant]
     Active Substance: LEUCOVORIN
     Indication: COLORECTAL CANCER STAGE III
     Route: 065
  3. LEUCOVORIN. [Concomitant]
     Active Substance: LEUCOVORIN
     Indication: COLORECTAL CANCER STAGE III
     Route: 065
  4. OXALIPLATIN. [Suspect]
     Active Substance: OXALIPLATIN
     Indication: COLORECTAL CANCER STAGE III
     Route: 065
  5. LITHIUM. [Concomitant]
     Active Substance: LITHIUM
     Indication: SCHIZOAFFECTIVE DISORDER
     Route: 065
  6. OXALIPLATIN. [Suspect]
     Active Substance: OXALIPLATIN
     Indication: COLORECTAL CANCER STAGE III
     Route: 065
  7. ONDANSETRON [Concomitant]
     Active Substance: ONDANSETRON
     Route: 065
  8. DEXAMETHASONE. [Concomitant]
     Active Substance: DEXAMETHASONE
     Indication: PREMEDICATION
     Route: 065
  9. 5-FU [Concomitant]
     Active Substance: FLUOROURACIL
     Indication: COLORECTAL CANCER STAGE III
     Route: 065
  10. GUAIFENESIN. [Concomitant]
     Active Substance: GUAIFENESIN
     Indication: PRODUCTIVE COUGH
     Route: 065

REACTIONS (26)
  - Polyuria [Recovered/Resolved]
  - Hyperhidrosis [Recovered/Resolved]
  - Hypotension [Recovered/Resolved]
  - Dilatation ventricular [Recovered/Resolved]
  - Oedema peripheral [Recovered/Resolved]
  - Capillary leak syndrome [Recovered/Resolved]
  - Lung infiltration [Recovered/Resolved]
  - Cardiac output decreased [Recovered/Resolved]
  - Dizziness [Recovered/Resolved]
  - Tachypnoea [Recovered/Resolved]
  - Crepitations [Recovered/Resolved]
  - Pulmonary oedema [Recovered/Resolved]
  - Metabolic acidosis [Recovered/Resolved]
  - Foaming at mouth [Recovered/Resolved]
  - Hyperdynamic left ventricle [Recovered/Resolved]
  - Hyperkalaemia [Recovered/Resolved]
  - Anuria [Recovered/Resolved]
  - Cyanosis [Recovered/Resolved]
  - Hypoxia [Recovered/Resolved]
  - Blood pressure systolic increased [Recovered/Resolved]
  - Acute respiratory distress syndrome [Recovered/Resolved]
  - Haemoconcentration [Recovered/Resolved]
  - Hypoalbuminaemia [Recovered/Resolved]
  - Dyspnoea [Recovered/Resolved]
  - Nephrogenic diabetes insipidus [Recovered/Resolved]
  - Acute kidney injury [Recovered/Resolved]
